FAERS Safety Report 6030050-3 (Version None)
Quarter: 2008Q4

REPORT INFORMATION
  Report Type: 
  Country: None (occurrence: None)
  Receive Date: 20081222
  Receipt Date: 20080912
  Transmission Date: 20090506
  Serious: Yes (Other)
  Sender: FDA-Public Use
  Company Number: US-WYE-H05989308

PATIENT
  Age: 20 Year
  Sex: Female
  Weight: 57.66 kg

DRUGS (3)
  1. PRISTIQ [Suspect]
     Indication: MAJOR DEPRESSION
     Dosage: 50 MG 1X PER 2 DAY, ORAL
     Route: 048
     Dates: start: 20080902, end: 20080909
  2. XANAX [Concomitant]
  3. LAMICTAL [Concomitant]

REACTIONS (2)
  - CONTUSION [None]
  - MENORRHAGIA [None]
